FAERS Safety Report 24946863 (Version 1)
Quarter: 2025Q1

REPORT INFORMATION
  Report Type: Spontaneous
  Country: US (occurrence: US)
  Receive Date: 20250210
  Receipt Date: 20250210
  Transmission Date: 20250408
  Serious: No
  Sender: IPSEN BIOPHARMACEUTICALS, INC.
  Company Number: US-IPSEN Group, Research and Development-2024-21466

PATIENT
  Age: 87 Year
  Sex: Female
  Weight: 82.1 kg

DRUGS (19)
  1. TAZVERIK [Suspect]
     Active Substance: TAZEMETOSTAT HYDROBROMIDE
     Indication: Follicular lymphoma
     Dosage: 800 MG TWICE DAILY
     Route: 048
     Dates: start: 20240212
  2. ALLOPURINOL [Concomitant]
     Active Substance: ALLOPURINOL
  3. AMIODARONE [Concomitant]
     Active Substance: AMIODARONE
  4. BUMETANIDE [Concomitant]
     Active Substance: BUMETANIDE
  5. FARXIGA [Concomitant]
     Active Substance: DAPAGLIFLOZIN PROPANEDIOL
  6. FENOFIBRATE [Concomitant]
     Active Substance: FENOFIBRATE
  7. ALBUTEROL\IPRATROPIUM [Concomitant]
     Active Substance: ALBUTEROL\IPRATROPIUM
  8. KLONOPIN [Concomitant]
     Active Substance: CLONAZEPAM
  9. LASIX [Concomitant]
     Active Substance: FUROSEMIDE
  10. PAROXETINE [Concomitant]
     Active Substance: PAROXETINE
  11. PLAVIX [Concomitant]
     Active Substance: CLOPIDOGREL BISULFATE
  12. PRAMIPEXOLE [Concomitant]
     Active Substance: PRAMIPEXOLE
  13. PREDNISONE [Concomitant]
     Active Substance: PREDNISONE
  14. SPIRIVA [Concomitant]
     Active Substance: TIOTROPIUM BROMIDE MONOHYDRATE
  15. TOPROL XL [Concomitant]
     Active Substance: METOPROLOL SUCCINATE
  16. TYLENOL [Concomitant]
     Active Substance: ACETAMINOPHEN
  17. VALACYCLOVIR [Concomitant]
     Active Substance: VALACYCLOVIR HYDROCHLORIDE
  18. XARELTO [Concomitant]
     Active Substance: RIVAROXABAN
  19. ASPIRIN [Concomitant]
     Active Substance: ASPIRIN

REACTIONS (4)
  - Alopecia [Not Recovered/Not Resolved]
  - Taste disorder [Not Recovered/Not Resolved]
  - Oral pain [Recovering/Resolving]
  - Product dose omission issue [Unknown]
